FAERS Safety Report 5354018-5 (Version None)
Quarter: 2007Q2

REPORT INFORMATION
  Report Type: 
  Country: None (occurrence: None)
  Receive Date: 20070608
  Receipt Date: 20070608
  Transmission Date: 20071010
  Serious: Yes (Hospitalization)
  Sender: FDA-Public Use
  Company Number: None

PATIENT
  Sex: Male
  Weight: 90.45 kg

DRUGS (1)
  1. ST1571 (IMATINIB, GLEEVEC)(716051) [Suspect]
     Dosage: 100 MG
     Dates: start: 20050817

REACTIONS (8)
  - ALBUMIN URINE PRESENT [None]
  - BLOOD PHOSPHORUS INCREASED [None]
  - CONDITION AGGRAVATED [None]
  - HAEMOGLOBIN DECREASED [None]
  - HYPERKALAEMIA [None]
  - PLATELET COUNT DECREASED [None]
  - RENAL FAILURE ACUTE [None]
  - WHITE BLOOD CELL COUNT DECREASED [None]
